FAERS Safety Report 15748081 (Version 4)
Quarter: 2021Q2

REPORT INFORMATION
  Report Type: Report from Study
  Country: US (occurrence: US)
  Receive Date: 20181221
  Receipt Date: 20210502
  Transmission Date: 20210716
  Serious: Yes (Other)
  Sender: FDA-Public Use
  Company Number: PHEH2018US053185

PATIENT
  Age: 25 Year
  Sex: Female

DRUGS (5)
  1. AFINITOR [Suspect]
     Active Substance: EVEROLIMUS
     Dosage: 7.5 MG, QD
     Route: 048
  2. EPIDIOLEX [Suspect]
     Active Substance: CANNABIDIOL
     Indication: PRODUCT USED FOR UNKNOWN INDICATION
     Route: 065
  3. ATIVAN [Suspect]
     Active Substance: LORAZEPAM
     Indication: PRODUCT USED FOR UNKNOWN INDICATION
     Route: 065
  4. AFINITOR [Suspect]
     Active Substance: EVEROLIMUS
     Indication: ANGIOMYOLIPOMA
     Dosage: 15 MG, QD
     Route: 048
     Dates: start: 20130406
  5. AFINITOR [Suspect]
     Active Substance: EVEROLIMUS
     Dosage: 10 MG, QD
     Route: 048

REACTIONS (11)
  - Pollakiuria [Unknown]
  - Seizure [Unknown]
  - Pyrexia [Recovered/Resolved]
  - Nasal congestion [Recovered/Resolved]
  - Head injury [Unknown]
  - Dry mouth [Recovered/Resolved]
  - Head injury [Recovered/Resolved]
  - Drug level above therapeutic [Unknown]
  - Limb injury [Unknown]
  - Somnolence [Unknown]
  - Feeling drunk [Unknown]

NARRATIVE: CASE EVENT DATE: 20180702
